FAERS Safety Report 9137264 (Version 1)
Quarter: 2013Q1

REPORT INFORMATION
  Report Type: Spontaneous
  Country: US (occurrence: US)
  Receive Date: 20130219
  Receipt Date: 20130219
  Transmission Date: 20140127
  Serious: No
  Sender: FDA-Public Use
  Company Number: US-BRISTOL-MYERS SQUIBB COMPANY-16490849

PATIENT
  Age: 26 Year
  Sex: Female

DRUGS (1)
  1. ORENCIA FOR INJ [Suspect]
     Indication: RHEUMATOID ARTHRITIS
     Dosage: 1 DF = DOSAGE:7.1-7.4MG?INF:3?IV : SINCE JAN-2012; LAST INFUSION:16MAR12
     Route: 058
     Dates: start: 201111

REACTIONS (1)
  - Drug ineffective [Unknown]
